FAERS Safety Report 7671090-8 (Version None)
Quarter: 2011Q3

REPORT INFORMATION
  Report Type: 
  Country: None (occurrence: None)
  Receive Date: 20110808
  Receipt Date: 20110808
  Transmission Date: 20111222
  Serious: No
  Sender: FDA-Public Use
  Company Number: None

PATIENT
  Sex: Male
  Weight: 97.8 kg

DRUGS (1)
  1. FOSAPREPITANT [Suspect]
     Indication: NEOPLASM MALIGNANT
     Dosage: 150MG ONCE IV
     Route: 042
     Dates: start: 20110712, end: 20110804

REACTIONS (3)
  - DYSPNOEA [None]
  - ERYTHEMA [None]
  - CHEST DISCOMFORT [None]
